FAERS Safety Report 17249908 (Version 1)
Quarter: 2020Q1

REPORT INFORMATION
  Report Type: Report from Study
  Country: None (occurrence: CO)
  Receive Date: 20200109
  Receipt Date: 20200109
  Transmission Date: 20200409
  Serious: Yes (Death, Hospitalization)
  Sender: FDA-Public Use
  Company Number: CO-ABBVIE-20K-036-3225659-00

PATIENT
  Age: 2 Month
  Sex: Male

DRUGS (1)
  1. SYNAGIS [Suspect]
     Active Substance: PALIVIZUMAB
     Indication: PREMATURE BABY
     Route: 030
     Dates: start: 20191106, end: 20191206

REACTIONS (7)
  - Abdominal pain [Fatal]
  - Ventricular enlargement [Fatal]
  - Cardiomegaly [Fatal]
  - Cardio-respiratory arrest [Fatal]
  - Crying [Fatal]
  - Decreased appetite [Fatal]
  - Cardiac disorder [Fatal]

NARRATIVE: CASE EVENT DATE: 20191229
